FAERS Safety Report 4493532-1 (Version None)
Quarter: 2004Q4

REPORT INFORMATION
  Report Type: 
  Country: None (occurrence: None)
  Receive Date: 20041102
  Receipt Date: 20041102
  Transmission Date: 20050328
  Serious: Yes (Hospitalization)
  Sender: FDA-Public Use
  Company Number: None

PATIENT
  Age: 46 Year
  Sex: Female

DRUGS (6)
  1. OXCARBAZINE [Suspect]
     Indication: BIPOLAR DISORDER
     Dosage: 150MG DAILY  ORAL
     Route: 048
  2. FLUOXETINE [Concomitant]
  3. ATENOLOL [Concomitant]
  4. AMLODIPINE [Concomitant]
  5. CLONAZEPAM [Concomitant]
  6. OVER-THE COUNTER ANTACIDS AND MULTIVITAMINS [Concomitant]

REACTIONS (3)
  - ABDOMINAL PAIN [None]
  - HYPONATRAEMIA [None]
  - INAPPROPRIATE ANTIDIURETIC HORMONE SECRETION [None]
